FAERS Safety Report 9725953 (Version 1)
Quarter: 2013Q4

REPORT INFORMATION
  Report Type: Spontaneous
  Country: GB (occurrence: None)
  Receive Date: 20131118
  Receipt Date: 20131118
  Transmission Date: 20140711
  Serious: Yes (Other)
  Sender: FDA-Public Use
  Company Number: 2013038826

PATIENT
  Sex: 0

DRUGS (1)
  1. PRIVIGEN [Suspect]
     Indication: MYASTHENIA GRAVIS
     Dosage: 400 UG/KG QD

REACTIONS (6)
  - Renal failure acute [None]
  - Haemolysis [None]
  - Off label use [None]
  - Anaemia [None]
  - Spherocytic anaemia [None]
  - Dialysis [None]
